FAERS Safety Report 17161421 (Version 1)
Quarter: 2019Q4

REPORT INFORMATION
  Report Type: Report from Study
  Country: US (occurrence: US)
  Receive Date: 20191216
  Receipt Date: 20191216
  Transmission Date: 20200122
  Serious: No
  Sender: FDA-Public Use
  Company Number: NVSC2019US071081

PATIENT
  Sex: Female

DRUGS (1)
  1. COSENTYX [Suspect]
     Active Substance: SECUKINUMAB
     Indication: PSORIATIC ARTHROPATHY
     Dosage: 300 MG (QWEEKLY X 5 WEEKS THEN 300MG)
     Route: 058
     Dates: start: 20191101

REACTIONS (4)
  - Tonsillitis [Recovered/Resolved]
  - Oral pain [Recovered/Resolved]
  - Nasopharyngitis [Unknown]
  - Upper respiratory tract infection [Unknown]
